FAERS Safety Report 10214405 (Version 2)
Quarter: 2014Q2

REPORT INFORMATION
  Report Type: Report from Study
  Country: CL (occurrence: CL)
  Receive Date: 20140603
  Receipt Date: 20140603
  Transmission Date: 20141212
  Serious: Yes (Other)
  Sender: FDA-Public Use
  Company Number: CL-ACTELION-A-CH2009-31953

PATIENT
  Age: 54 Year
  Sex: Female
  Weight: 56.6 kg

DRUGS (6)
  1. MACITENTAN [Suspect]
     Indication: PULMONARY ARTERIAL HYPERTENSION
     Dosage: 10 MG, OD
     Route: 048
     Dates: start: 20090827, end: 20091214
  2. FUROSEMIDE [Concomitant]
     Dates: start: 20091209
  3. HYDROCHLOROTHIAZIDE [Concomitant]
     Dates: start: 20091209
  4. SPIRONOLACTONE [Concomitant]
     Dates: start: 20091209
  5. ASPIRIN [Concomitant]
     Dates: start: 20040211
  6. SILDENAFIL [Concomitant]
     Dosage: UNK
     Dates: start: 20081030

REACTIONS (9)
  - Anaemia [Recovered/Resolved]
  - Condition aggravated [Recovered/Resolved]
  - Pallor [Recovered/Resolved]
  - Nausea [Recovered/Resolved]
  - Decreased appetite [Recovered/Resolved]
  - Melaena [Recovered/Resolved]
  - Haematemesis [Recovered/Resolved]
  - Jaundice [Recovered/Resolved]
  - Hypersplenism [Recovered/Resolved]
